FAERS Safety Report 5488209-X (Version None)
Quarter: 2007Q3

REPORT INFORMATION
  Report Type: 
  Country: None (occurrence: None)
  Receive Date: 20070926
  Receipt Date: 20070821
  Transmission Date: 20080115
  Serious: No
  Sender: FDA-Public Use
  Company Number: HQWYE781823AUG07

PATIENT
  Sex: Female

DRUGS (5)
  1. TORISEL [Suspect]
     Indication: RENAL CELL CARCINOMA STAGE UNSPECIFIED
     Dosage: SEE IMAGE
     Route: 042
     Dates: start: 20070713, end: 20070713
  2. TORISEL [Suspect]
     Indication: RENAL CELL CARCINOMA STAGE UNSPECIFIED
     Dosage: SEE IMAGE
     Route: 042
     Dates: start: 20070720, end: 20070720
  3. TORISEL [Suspect]
     Indication: RENAL CELL CARCINOMA STAGE UNSPECIFIED
     Dosage: SEE IMAGE
     Route: 042
     Dates: start: 20070727, end: 20070727
  4. TORISEL [Suspect]
     Indication: RENAL CELL CARCINOMA STAGE UNSPECIFIED
     Dosage: SEE IMAGE
     Route: 042
     Dates: start: 20070803, end: 20070803
  5. TORISEL [Suspect]
     Indication: RENAL CELL CARCINOMA STAGE UNSPECIFIED
     Dosage: SEE IMAGE
     Route: 042
     Dates: start: 20070817, end: 20070817

REACTIONS (9)
  - ACCIDENTAL OVERDOSE [None]
  - ASTHENIA [None]
  - CHILLS [None]
  - DIARRHOEA [None]
  - INCORRECT DOSE ADMINISTERED [None]
  - LIP SWELLING [None]
  - ORAL DISORDER [None]
  - PRURITUS [None]
  - VOMITING [None]
